FAERS Safety Report 7619337-8 (Version None)
Quarter: 2011Q3

REPORT INFORMATION
  Report Type: 
  Country: None (occurrence: None)
  Receive Date: 20110719
  Receipt Date: 20110708
  Transmission Date: 20111222
  Serious: Yes (Other)
  Sender: FDA-Public Use
  Company Number: IE-BRISTOL-MYERS SQUIBB COMPANY-15895717

PATIENT
  Age: 48 Year
  Sex: Female

DRUGS (2)
  1. LITHIUM CARBONATE [Suspect]
     Indication: BIPOLAR DISORDER
  2. ABILIFY [Suspect]
     Indication: BIPOLAR DISORDER

REACTIONS (2)
  - HYPERTHYROIDISM [None]
  - DYSTONIA [None]
